FAERS Safety Report 5096885-9 (Version None)
Quarter: 2006Q3

REPORT INFORMATION
  Report Type: 
  Country: None (occurrence: None)
  Receive Date: 20060906
  Receipt Date: 20060825
  Transmission Date: 20061208
  Serious: Yes (Hospitalization, Other)
  Sender: FDA-Public Use
  Company Number: US-JNJFOC-20060801118

PATIENT
  Sex: Female
  Weight: 78.47 kg

DRUGS (8)
  1. REMICADE [Suspect]
     Indication: RHEUMATOID ARTHRITIS
     Route: 042
  2. REMICADE [Suspect]
     Indication: CROHN'S DISEASE
     Route: 042
  3. SYNTHROID [Concomitant]
     Indication: THYROID DISORDER
  4. PREDNISONE TAB [Concomitant]
     Indication: CROHN'S DISEASE
  5. PREDNISONE TAB [Concomitant]
     Indication: RHEUMATOID ARTHRITIS
  6. DICLOFENAC [Concomitant]
     Indication: RHEUMATOID ARTHRITIS
  7. ACIPHEX [Concomitant]
     Indication: GASTROOESOPHAGEAL REFLUX DISEASE
  8. IMURAN [Concomitant]
     Indication: RHEUMATOID ARTHRITIS

REACTIONS (2)
  - BREAST CANCER [None]
  - BREAST CANCER FEMALE [None]
